FAERS Safety Report 12161860 (Version 1)
Quarter: 2016Q1

REPORT INFORMATION
  Report Type: Spontaneous
  Country: DE (occurrence: DE)
  Receive Date: 20160309
  Receipt Date: 20160309
  Transmission Date: 20160526
  Serious: Yes (Death)
  Sender: FDA-Public Use
  Company Number: DE-ACCORD-038666

PATIENT
  Age: 18 Year
  Sex: Male
  Weight: 46 kg

DRUGS (1)
  1. GEMCITABINE/GEMCITABINE HYDROCHLORIDE [Suspect]
     Active Substance: GEMCITABINE\GEMCITABINE HYDROCHLORIDE
     Indication: ADJUVANT THERAPY
     Route: 042
     Dates: start: 20160128

REACTIONS (1)
  - Alveolitis [Fatal]

NARRATIVE: CASE EVENT DATE: 20160208
